FAERS Safety Report 23675563 (Version 6)
Quarter: 2024Q3

REPORT INFORMATION
  Report Type: Spontaneous
  Country: ES (occurrence: ES)
  Receive Date: 20240327
  Receipt Date: 20240915
  Transmission Date: 20241016
  Serious: Yes (Hospitalization, Other)
  Sender: AUROBINDO
  Company Number: ES-SANDOZ-SDZ2024ES025758

PATIENT
  Age: 74 Year
  Sex: Female

DRUGS (2)
  1. AZACITIDINE [Suspect]
     Active Substance: AZACITIDINE
     Indication: Acute myeloid leukaemia
     Dosage: 120 MILLIGRAM
     Route: 058
  2. CAPECITABINE [Concomitant]
     Active Substance: CAPECITABINE
     Indication: Breast cancer
     Dosage: UNK
     Route: 065

REACTIONS (2)
  - Acute kidney injury [Recovered/Resolved]
  - Renal impairment [Recovered/Resolved]
